FAERS Safety Report 17207828 (Version 1)
Quarter: 2019Q4

REPORT INFORMATION
  Report Type: Spontaneous
  Country: PL (occurrence: PL)
  Receive Date: 20191227
  Receipt Date: 20191227
  Transmission Date: 20200122
  Serious: Yes (Other)
  Sender: FDA-Public Use
  Company Number: PL-PFIZER INC-2019553869

PATIENT
  Age: 68 Year
  Sex: Male

DRUGS (10)
  1. PARACETAMOL AND TRAMADOL HYDROCHLORIDE [Suspect]
     Active Substance: ACETAMINOPHEN\TRAMADOL HYDROCHLORIDE
     Indication: PAIN IN EXTREMITY
     Dosage: 1 DF, UNKNOWN (AD-HOC)
     Route: 065
  2. ALPHA LIPOIC ACID [Suspect]
     Active Substance: .ALPHA.-LIPOIC ACID
     Dosage: 600 MG, 1X/DAY
     Route: 048
  3. AMITRIPTYLINE [Suspect]
     Active Substance: AMITRIPTYLINE
     Indication: PAIN IN EXTREMITY
     Dosage: 10 MG, 1X/DAY BED TIME
     Route: 065
  4. BENFOTIAMINE [Suspect]
     Active Substance: BENFOTIAMINE
     Indication: PAIN IN EXTREMITY
     Dosage: 150 MG, 1X/DAY
     Route: 065
  5. GABAPENTIN. [Suspect]
     Active Substance: GABAPENTIN
     Indication: PAIN IN EXTREMITY
     Dosage: 300 MG, 3X/DAY
     Route: 065
  6. GABAPENTIN. [Suspect]
     Active Substance: GABAPENTIN
     Dosage: 300 MG, QD (AT NIGHT)
     Route: 065
  7. PARACETAMOL AND TRAMADOL HYDROCHLORIDE [Suspect]
     Active Substance: ACETAMINOPHEN\TRAMADOL HYDROCHLORIDE
     Dosage: 1 DF, Q6H
     Route: 065
  8. AMITRIPTYLINE [Suspect]
     Active Substance: AMITRIPTYLINE
     Dosage: 10 MG, 1X/DAY NIGHT TIME
     Route: 065
  9. ALPHA LIPOIC ACID [Suspect]
     Active Substance: .ALPHA.-LIPOIC ACID
     Indication: PAIN IN EXTREMITY
     Dosage: 600 MG, 1X/DAY
     Route: 042
  10. AMITRIPTYLINE [Suspect]
     Active Substance: AMITRIPTYLINE
     Dosage: 25 MG, 1X/DAY NIGHT TIME
     Route: 065

REACTIONS (10)
  - Fatigue [Unknown]
  - Constipation [Unknown]
  - Muscle contractions involuntary [Unknown]
  - Paraesthesia [Unknown]
  - Disturbance in attention [Unknown]
  - Glycosylated haemoglobin increased [Unknown]
  - Drug ineffective [Unknown]
  - Diabetic neuropathy [Unknown]
  - Areflexia [Unknown]
  - Dry mouth [Unknown]
